FAERS Safety Report 4348977-7 (Version None)
Quarter: 2004Q2

REPORT INFORMATION
  Report Type: 
  Country: None (occurrence: None)
  Receive Date: 20040423
  Receipt Date: 20040416
  Transmission Date: 20050107
  Serious: Yes (Other)
  Sender: FDA-Public Use
  Company Number: 2004-03-2134

PATIENT
  Age: 44 Year
  Sex: Female
  Weight: 47 kg

DRUGS (2)
  1. VIRAFERONPEG [Suspect]
     Indication: HEPATITIS C
     Dosage: 72 MCG QWK
     Dates: start: 20040206, end: 20040206
  2. REBETOL [Suspect]
     Indication: HEPATITIS C
     Dosage: 400 MG QD ORAL
     Route: 048
     Dates: start: 20040206, end: 20040212

REACTIONS (8)
  - BRADYCARDIA [None]
  - CHEST PAIN [None]
  - PALPITATIONS [None]
  - PERICARDIAL EFFUSION [None]
  - PERICARDITIS [None]
  - PYREXIA [None]
  - TACHYCARDIA [None]
  - VERTIGO [None]
